FAERS Safety Report 8266886-8 (Version None)
Quarter: 2012Q2

REPORT INFORMATION
  Report Type: 
  Country: None (occurrence: None)
  Receive Date: 20120409
  Receipt Date: 20120326
  Transmission Date: 20120825
  Serious: Yes (Other)
  Sender: FDA-Public Use
  Company Number: BR-AMGEN-BRASP2010004047

PATIENT
  Age: 48 Year
  Sex: Female
  Weight: 72 kg

DRUGS (21)
  1. CLONAZEPAM [Concomitant]
     Dosage: AT NIGHT
  2. FOLIC ACID [Concomitant]
     Dosage: ONCE DAILY
  3. HYDROCHLOROTHIAZIDE [Concomitant]
     Dosage: UNK
  4. ETANERCEPT [Suspect]
     Indication: PSORIATIC ARTHROPATHY
     Dosage: 25 MG, 2 TIMES/WK
     Route: 058
     Dates: start: 20100818, end: 20101101
  5. IBUPROFEN [Concomitant]
     Dosage: UNK
  6. METHOTREXATE [Concomitant]
     Dosage: 3 TABLETS PER WEEK
  7. FOLIC ACID [Concomitant]
     Dosage: ONCE DAILY
  8. AMITRIL [Concomitant]
     Dosage: UNK
  9. SIMVASTATIN [Concomitant]
     Dosage: UNK
  10. IBUPROFEN [Concomitant]
     Dosage: UNK
  11. HYDROCHLOROTHIAZIDE [Concomitant]
     Dosage: UNK
  12. AMITRIPTYLINE HYDROCHLORIDE [Concomitant]
     Dosage: 25 MG, 2X/DAY
  13. COMPLEXO B                         /00003501/ [Concomitant]
     Dosage: UNK
  14. CLONAZEPAM [Concomitant]
     Dosage: AT NIGHT
  15. METHOTREXATE [Concomitant]
     Dosage: 3 TABLETS PER WEEK
  16. METHOTREXATE [Concomitant]
     Dosage: 3 TABLETS PER WEEK
  17. FLUOXETINE [Concomitant]
     Dosage: UNK
  18. CLONAZEPAM [Concomitant]
     Dosage: 25 MG, UNK
  19. IBUPROFEN [Concomitant]
     Dosage: UNK
  20. HYDROCHLOROTHIAZIDE [Concomitant]
     Dosage: UNK
  21. DIPIRONA [Concomitant]
     Dosage: UNK

REACTIONS (9)
  - ERYTHEMA [None]
  - ARTHRALGIA [None]
  - JOINT INJURY [None]
  - DRUG EFFECT DECREASED [None]
  - INTERVERTEBRAL DISC PROTRUSION [None]
  - BACK PAIN [None]
  - ANGIOPATHY [None]
  - INJECTION SITE MASS [None]
  - HYPERSENSITIVITY [None]
